FAERS Safety Report 7805447-9 (Version None)
Quarter: 2011Q4

REPORT INFORMATION
  Report Type: 
  Country: None (occurrence: None)
  Receive Date: 20111010
  Receipt Date: 20110928
  Transmission Date: 20120403
  Serious: Yes (Other)
  Sender: FDA-Public Use
  Company Number: CN-ALLERGAN-1112969US

PATIENT
  Age: 41 Year
  Sex: Female

DRUGS (2)
  1. BIMATOPROST [Suspect]
     Indication: GLAUCOMA
     Route: 047
  2. DEXAMETHASONE [Concomitant]
     Indication: PRODUCT USED FOR UNKNOWN INDICATION
     Route: 047

REACTIONS (3)
  - THERAPEUTIC RESPONSE INCREASED [None]
  - VISION BLURRED [None]
  - CATARACT [None]
